FAERS Safety Report 23078571 (Version 1)
Quarter: 2023Q4

REPORT INFORMATION
  Report Type: Spontaneous
  Country: ES (occurrence: ES)
  Receive Date: 20231018
  Receipt Date: 20231018
  Transmission Date: 20240110
  Serious: Yes (Other)
  Sender: FDA-Public Use
  Company Number: None

PATIENT
  Age: 84 Year
  Sex: Female

DRUGS (9)
  1. DAPTOMYCIN [Suspect]
     Active Substance: DAPTOMYCIN
     Indication: Arthritis bacterial
     Dates: start: 20230710, end: 20230818
  2. PRADAXA [Concomitant]
     Active Substance: DABIGATRAN ETEXILATE MESYLATE
     Dosage: STRENGTH: 110 MG, 60 CAPSULES
     Dates: start: 20220630
  3. ARAVA [Concomitant]
     Active Substance: LEFLUNOMIDE
     Dosage: STRENGTH: 20 MG, 100 TABLETS
     Dates: start: 20221228
  4. JANUVIA [Concomitant]
     Active Substance: SITAGLIPTIN PHOSPHATE
     Dosage: STRENGTH: 100 MG, 28 TABLETS
     Dates: start: 20230623
  5. EZETIMIBE [Concomitant]
     Active Substance: EZETIMIBE
     Dosage: STRENGTH: 10 MG, 28 TABLETS
     Dates: start: 20120504
  6. IRON [Concomitant]
     Active Substance: IRON
     Dosage: STRENGTH: 40 MG, GRANULES FOR ORAL SOLUTION, 30 SACHETS
     Dates: start: 20230411
  7. PITAVASTATIN [Concomitant]
     Active Substance: PITAVASTATIN
     Dosage: STRENGTH: 2 MG, 28 TABLETS
     Dates: start: 20210505
  8. FUROSEMIDE [Concomitant]
     Active Substance: FUROSEMIDE
     Dosage: STRENGTH: 40 MG TABLET EFG, 30 TABLETS
     Dates: start: 20230706
  9. DAPTOMYCIN [Suspect]
     Active Substance: DAPTOMYCIN
     Indication: Arthritis bacterial
     Dates: start: 20230823, end: 20230831

REACTIONS (1)
  - Lung infiltration [Recovered/Resolved]

NARRATIVE: CASE EVENT DATE: 20230831
